FAERS Safety Report 25773673 (Version 1)
Quarter: 2025Q3

REPORT INFORMATION
  Report Type: Spontaneous
  Country: US (occurrence: US)
  Receive Date: 20250908
  Receipt Date: 20250908
  Transmission Date: 20251021
  Serious: No
  Sender: BRISTOL-MYERS SQUIBB COMPANY
  Company Number: US-BRISTOL-MYERS SQUIBB COMPANY-2025-123732

PATIENT
  Age: 34 Year
  Sex: Female

DRUGS (3)
  1. ORENCIA [Suspect]
     Active Substance: ABATACEPT
     Indication: Rheumatoid arthritis
     Dates: start: 202402
  2. OTREXUP [Concomitant]
     Active Substance: METHOTREXATE
     Indication: Systemic lupus erythematosus
  3. OTREXUP [Concomitant]
     Active Substance: METHOTREXATE
     Indication: Rheumatoid arthritis

REACTIONS (1)
  - Rheumatoid arthritis [Unknown]

NARRATIVE: CASE EVENT DATE: 20250801
